FAERS Safety Report 5569426-7 (Version None)
Quarter: 2007Q4

REPORT INFORMATION
  Report Type: 
  Country: None (occurrence: None)
  Receive Date: 20071220
  Receipt Date: 20070309
  Transmission Date: 20080405
  Serious: No
  Sender: FDA-Public Use
  Company Number: US-ABBOTT-06P-163-0325307-00

PATIENT
  Sex: Male
  Weight: 100 kg

DRUGS (3)
  1. DILAUDID VIAL 2 MG/ML [Suspect]
     Indication: MIGRAINE
     Route: 051
     Dates: start: 20040101
  2. FLUOXETINE HYDROCHLORIDE [Concomitant]
     Indication: DEPRESSION
     Route: 048
  3. PROMETHAZINE HCL [Concomitant]
     Indication: NAUSEA
     Route: 048

REACTIONS (1)
  - DRUG INEFFECTIVE [None]
